FAERS Safety Report 7005209-9 (Version None)
Quarter: 2010Q3

REPORT INFORMATION
  Report Type: 
  Country: None (occurrence: None)
  Receive Date: 20100921
  Receipt Date: 20100915
  Transmission Date: 20110219
  Serious: Yes (Other)
  Sender: FDA-Public Use
  Company Number: FR-ROXANE LABORATORIES, INC.-2010-RO-01229RO

PATIENT
  Age: 29 Year
  Sex: Male

DRUGS (3)
  1. METHADONE HCL [Suspect]
     Indication: DRUG ABUSE
     Dosage: 8 MG
  2. SUBUTEX [Suspect]
     Indication: DRUG ABUSE
  3. REMICADE [Suspect]
     Indication: PSORIASIS
     Dates: start: 20060101

REACTIONS (1)
  - PSORIASIS [None]
